FAERS Safety Report 23528473 (Version 1)
Quarter: 2024Q1

REPORT INFORMATION
  Report Type: Spontaneous
  Country: AU (occurrence: AU)
  Receive Date: 20240215
  Receipt Date: 20240215
  Transmission Date: 20240410
  Serious: Yes (Life-Threatening, Other)
  Sender: FDA-Public Use
  Company Number: AU-BRISTOL-MYERS SQUIBB COMPANY-2024-023322

PATIENT
  Age: 18 Month
  Sex: Male
  Weight: 13.1 kg

DRUGS (2)
  1. APIXABAN [Suspect]
     Active Substance: APIXABAN
     Indication: Product used for unknown indication
  2. CANDESARTAN [Suspect]
     Active Substance: CANDESARTAN
     Indication: Product used for unknown indication

REACTIONS (3)
  - Accidental overdose [Unknown]
  - Prothrombin time prolonged [Recovered/Resolved]
  - Activated partial thromboplastin time prolonged [Recovered/Resolved]
